FAERS Safety Report 10247083 (Version 1)
Quarter: 2014Q2

REPORT INFORMATION
  Report Type: Spontaneous
  Country: BR (occurrence: BR)
  Receive Date: 20140619
  Receipt Date: 20140619
  Transmission Date: 20141212
  Serious: Yes (Hospitalization)
  Sender: FDA-Public Use
  Company Number: BR-ASTRAZENECA-2014SE44154

PATIENT
  Age: 76 Year
  Sex: Male
  Weight: 77.5 kg

DRUGS (2)
  1. CRESTOR [Suspect]
     Indication: BLOOD CHOLESTEROL INCREASED
     Route: 048
     Dates: start: 2005
  2. UNSPECIFIED MEDICATION [Concomitant]
     Indication: CHEST PAIN

REACTIONS (1)
  - Coronary artery occlusion [Recovered/Resolved]
